FAERS Safety Report 26079722 (Version 2)
Quarter: 2025Q4

REPORT INFORMATION
  Report Type: Report from Study
  Country: CA (occurrence: CA)
  Receive Date: 20251123
  Receipt Date: 20251208
  Transmission Date: 20260118
  Serious: Yes (Death)
  Sender: ABBVIE
  Company Number: CA-ABBVIE-6559490

PATIENT
  Age: 70 Year
  Sex: Male

DRUGS (1)
  1. SKYRIZI [Suspect]
     Active Substance: RISANKIZUMAB-RZAA
     Indication: Crohn^s disease
     Route: 058

REACTIONS (2)
  - Death [Fatal]
  - Cardiac disorder [Unknown]

NARRATIVE: CASE EVENT DATE: 20251101
